FAERS Safety Report 8472550 (Version 4)
Quarter: 2013Q1

REPORT INFORMATION
  Report Type: Spontaneous
  Country: JP (occurrence: JP)
  Receive Date: 20120322
  Receipt Date: 20130321
  Transmission Date: 20140127
  Serious: Yes (Other)
  Sender: FDA-Public Use
  Company Number: JP-GLAXOSMITHKLINE-B0759255A

PATIENT
  Age: 38 Year
  Sex: Female

DRUGS (6)
  1. LAMICTAL [Suspect]
     Indication: BIPOLAR DISORDER
     Dosage: 50MG PER DAY
     Route: 048
     Dates: start: 20110916, end: 20111016
  2. LAMICTAL [Suspect]
     Indication: BIPOLAR DISORDER
     Dosage: 100MG PER DAY
     Route: 048
     Dates: start: 20111017, end: 20111023
  3. ABILIFY [Concomitant]
     Indication: BIPOLAR DISORDER
     Dosage: 6MG TWICE PER DAY
     Route: 048
     Dates: start: 20110725
  4. DEPAS [Concomitant]
     Indication: BIPOLAR DISORDER
     Dosage: 1MG TWICE PER DAY
     Route: 048
     Dates: start: 20110721
  5. AKINETON [Concomitant]
     Indication: BIPOLAR DISORDER
     Route: 048
  6. ZOPICLONE [Concomitant]
     Indication: BIPOLAR DISORDER
     Route: 048

REACTIONS (18)
  - Drug reaction with eosinophilia and systemic symptoms [Unknown]
  - Rash [Recovering/Resolving]
  - Drug hypersensitivity [Unknown]
  - Pyrexia [Unknown]
  - Generalised erythema [Recovered/Resolved]
  - Lymphadenopathy [Unknown]
  - Eosinophil count increased [Unknown]
  - Human herpesvirus 6 infection [Unknown]
  - Face oedema [Unknown]
  - Oedema peripheral [Unknown]
  - Pallor [Unknown]
  - Exfoliative rash [Unknown]
  - Drug eruption [Unknown]
  - Toxic skin eruption [Unknown]
  - Hepatic function abnormal [Unknown]
  - Rash maculo-papular [Unknown]
  - Swelling face [Unknown]
  - Lymphocyte stimulation test positive [Unknown]
